FAERS Safety Report 17498708 (Version 3)
Quarter: 2020Q3

REPORT INFORMATION
  Report Type: Spontaneous
  Country: DE (occurrence: DE)
  Receive Date: 20200305
  Receipt Date: 20200930
  Transmission Date: 20201102
  Serious: Yes (Other)
  Sender: FDA-Public Use
  Company Number: DE-ANIPHARMA-2020-DE-000039

PATIENT
  Sex: Female
  Weight: 50 kg

DRUGS (3)
  1. BELOC?ZOK(METOPROLOL SUCCINATE [Concomitant]
     Route: 065
  2. TAVOR [Concomitant]
     Route: 065
  3. ATACAND [Suspect]
     Active Substance: CANDESARTAN CILEXETIL
     Indication: HYPERTONIA
     Dosage: 16 MG BID
     Route: 048

REACTIONS (12)
  - Arrhythmia [Unknown]
  - Alopecia [Unknown]
  - Intentional product misuse [Unknown]
  - Product use in unapproved indication [Unknown]
  - Atrial fibrillation [Unknown]
  - Tachycardia [Unknown]
  - Restlessness [Unknown]
  - Mental disorder [Unknown]
  - Off label use [Unknown]
  - Dysgeusia [Unknown]
  - Hepatic enzyme increased [Unknown]
  - Dizziness [Unknown]
